FAERS Safety Report 5155314-7 (Version None)
Quarter: 2006Q4

REPORT INFORMATION
  Report Type: 
  Country: None (occurrence: None)
  Receive Date: 20061121
  Receipt Date: 20040909
  Transmission Date: 20070319
  Serious: Yes (Death, Hospitalization, Other)
  Sender: FDA-Public Use
  Company Number: US-AMGEN-US084178

PATIENT
  Sex: Female
  Weight: 48 kg

DRUGS (5)
  1. EPOGEN [Suspect]
     Indication: DIALYSIS
     Route: 042
     Dates: start: 20020912
  2. DILTIAZEM HCL [Concomitant]
  3. LISINOPRIL [Concomitant]
  4. LORAZEPAM [Concomitant]
  5. TEMAZEPAM [Concomitant]

REACTIONS (9)
  - ANTI-ERYTHROPOIETIN ANTIBODY POSITIVE [None]
  - BONE MARROW FAILURE [None]
  - CARDIAC FAILURE CONGESTIVE [None]
  - CONDITION AGGRAVATED [None]
  - DEATH [None]
  - DRUG INEFFECTIVE [None]
  - HYPERPARATHYROIDISM SECONDARY [None]
  - MALNUTRITION [None]
  - PULMONARY OEDEMA [None]
